FAERS Safety Report 7394593-2 (Version None)
Quarter: 2011Q2

REPORT INFORMATION
  Report Type: 
  Country: None (occurrence: None)
  Receive Date: 20110405
  Receipt Date: 20110330
  Transmission Date: 20111010
  Serious: Yes (Other)
  Sender: FDA-Public Use
  Company Number: US-PFIZER INC-2011071554

PATIENT
  Sex: Female
  Weight: 66 kg

DRUGS (1)
  1. DEPO-PROVERA [Suspect]
     Indication: CONTRACEPTION
     Dosage: UNK
     Route: 030
     Dates: start: 20091201, end: 20100301

REACTIONS (2)
  - VENTRICULAR ARRHYTHMIA [None]
  - SUPRAVENTRICULAR TACHYCARDIA [None]
